FAERS Safety Report 4294649-7 (Version None)
Quarter: 2004Q1

REPORT INFORMATION
  Report Type: 
  Country: None (occurrence: None)
  Receive Date: 20040213
  Receipt Date: 20030903
  Transmission Date: 20041129
  Serious: Yes (Other)
  Sender: FDA-Public Use
  Company Number: US-GLAXOSMITHKLINE-A0424589A

PATIENT
  Age: 43 Year
  Sex: Male

DRUGS (1)
  1. PAXIL CR [Suspect]
     Route: 048

REACTIONS (13)
  - AGGRESSION [None]
  - AMNESIA [None]
  - APATHY [None]
  - COGNITIVE DISORDER [None]
  - CONFUSIONAL STATE [None]
  - CRYING [None]
  - DEPENDENT PERSONALITY DISORDER [None]
  - DISTURBANCE IN ATTENTION [None]
  - FEELING OF RELAXATION [None]
  - MEDICATION ERROR [None]
  - MEMORY IMPAIRMENT [None]
  - MENTAL IMPAIRMENT [None]
  - PERFORMANCE STATUS DECREASED [None]
